FAERS Safety Report 8157498-5 (Version None)
Quarter: 2012Q1

REPORT INFORMATION
  Report Type: 
  Country: None (occurrence: None)
  Receive Date: 20120222
  Receipt Date: 20120207
  Transmission Date: 20120608
  Serious: Yes (Hospitalization)
  Sender: FDA-Public Use
  Company Number: CHPA2012US002826

PATIENT
  Sex: Female

DRUGS (1)
  1. GAS-X EXTRA STR CHEWABLE TABLETS UNKNOWN [Suspect]
     Dosage: UNK, UNK
     Route: 048

REACTIONS (2)
  - CONVULSION [None]
  - BARBITURATES POSITIVE [None]
